FAERS Safety Report 8160127-8 (Version None)
Quarter: 2012Q1

REPORT INFORMATION
  Report Type: 
  Country: None (occurrence: None)
  Receive Date: 20120103
  Receipt Date: 20111028
  Transmission Date: 20120608
  Serious: No
  Sender: FDA-Public Use
  Company Number: AE-2011-001580

PATIENT
  Age: 45 Year
  Sex: Female
  Weight: 75.2971 kg

DRUGS (5)
  1. INCIVEK [Suspect]
     Dosage: 2250 MG (750 MG, 3 IN 1 D)
     Dates: start: 20110806, end: 20111029
  2. PEGASYS [Concomitant]
  3. ZYRTEC [Concomitant]
  4. RIBAVIRIN [Concomitant]
  5. PROMETHAZINE [Concomitant]

REACTIONS (12)
  - EYE IRRITATION [None]
  - ORAL HERPES [None]
  - ORAL CANDIDIASIS [None]
  - DIZZINESS [None]
  - ANAEMIA [None]
  - OROPHARYNGEAL BLISTERING [None]
  - VISION BLURRED [None]
  - DEHYDRATION [None]
  - VISUAL IMPAIRMENT [None]
  - EYE DISCHARGE [None]
  - VARICOSE VEIN [None]
  - DRUG ADMINISTRATION ERROR [None]
